FAERS Safety Report 20745909 (Version 1)
Quarter: 2022Q2

REPORT INFORMATION
  Report Type: Spontaneous
  Country: RU (occurrence: RU)
  Receive Date: 20220425
  Receipt Date: 20220425
  Transmission Date: 20220721
  Serious: Yes (Other)
  Sender: FDA-Public Use
  Company Number: RU-AMERICAN REGENT INC-2022001104

PATIENT
  Age: 15 Year
  Sex: Female
  Weight: 50 kg

DRUGS (2)
  1. FERINJECT [Suspect]
     Active Substance: FERRIC CARBOXYMALTOSE
     Indication: Iron deficiency anaemia
     Dosage: (350 MG, 1 IN 1 TOTAL)
     Dates: start: 20201205, end: 20201205
  2. FOLIC ACID [Concomitant]
     Active Substance: FOLIC ACID
     Indication: Anaemia
     Dosage: (1 ML, 1 IN 1 D)
     Route: 048
     Dates: start: 20201204, end: 20201208

REACTIONS (3)
  - Asthenia [Recovered/Resolved]
  - Pruritus [Recovered/Resolved]
  - Urticaria [Recovered/Resolved]

NARRATIVE: CASE EVENT DATE: 20201205
